FAERS Safety Report 15318469 (Version 1)
Quarter: 2018Q3

REPORT INFORMATION
  Report Type: Spontaneous
  Country: US (occurrence: US)
  Receive Date: 20180817
  Receipt Date: 20180817
  Transmission Date: 20181010
  Serious: Yes (Disabling)
  Sender: FDA-Public Use
  Company Number: None

PATIENT
  Age: 61 Year
  Sex: Female
  Weight: 95.85 kg

DRUGS (11)
  1. VITAMIN B12 [Concomitant]
     Active Substance: CYANOCOBALAMIN
  2. LOSARTAN. [Concomitant]
     Active Substance: LOSARTAN
  3. FUROSEMIDE. [Concomitant]
     Active Substance: FUROSEMIDE
  4. FLONASE [Concomitant]
     Active Substance: FLUTICASONE PROPIONATE
  5. VITAMIN D3 [Concomitant]
     Active Substance: CHOLECALCIFEROL
  6. VALSARTAN HCTZ [Suspect]
     Active Substance: HYDROCHLOROTHIAZIDE\VALSARTAN
     Indication: HYPERTENSION
     Dosage: ?          QUANTITY:1 TABLET(S);?
     Route: 048
     Dates: start: 20130301, end: 20180619
  7. ATORVASTATIN [Concomitant]
     Active Substance: ATORVASTATIN
  8. MONTELUKAST [Concomitant]
     Active Substance: MONTELUKAST SODIUM
  9. CLARITIN [Concomitant]
     Active Substance: LORATADINE
  10. VENTOLIN [Concomitant]
     Active Substance: ALBUTEROL SULFATE
  11. FISH OIL CAPS [Concomitant]

REACTIONS (35)
  - Blood urea nitrogen/creatinine ratio increased [None]
  - Protein urine present [None]
  - Nail disorder [None]
  - Myalgia [None]
  - Blood cholesterol increased [None]
  - Hair growth abnormal [None]
  - Musculoskeletal stiffness [None]
  - Oedema peripheral [None]
  - Globulins increased [None]
  - Pain in extremity [None]
  - Fatigue [None]
  - Nephrolithiasis [None]
  - Blood alkaline phosphatase increased [None]
  - Red blood cells urine positive [None]
  - Lung hyperinflation [None]
  - Bronchitis [None]
  - Hair texture abnormal [None]
  - Back pain [None]
  - Total cholesterol/HDL ratio decreased [None]
  - Muscle spasms [None]
  - Asthenia [None]
  - Fibrin D dimer increased [None]
  - Mean platelet volume decreased [None]
  - Pulmonary fibrosis [None]
  - Cardiomegaly [None]
  - Nail growth abnormal [None]
  - Arthralgia [None]
  - Dysphonia [None]
  - Glomerular filtration rate decreased [None]
  - Atelectasis [None]
  - Abdominal pain [None]
  - Haematuria [None]
  - Renal pain [None]
  - Blood 1,25-dihydroxycholecalciferol decreased [None]
  - Eye pain [None]

NARRATIVE: CASE EVENT DATE: 20180619
